FAERS Safety Report 9507792 (Version 1)
Quarter: 2013Q1

REPORT INFORMATION
  Report Type: Spontaneous
  Country: US (occurrence: None)
  Receive Date: 20130305
  Receipt Date: 20130305
  Transmission Date: 20140127
  Serious: Yes (Other)
  Sender: FDA-Public Use
  Company Number: 163-21880-11090846

PATIENT
  Age: 73 Year
  Sex: Male
  Weight: 80.74 kg

DRUGS (11)
  1. REVLIMID (LENALIDOMIDE) (25 MILLIGRAM, CAPSULES) [Suspect]
     Indication: PLASMA CELL MYELOMA
     Dosage: 25 MG, 21 IN 21 D, PO
     Route: 048
     Dates: start: 20100930
  2. ASPIRIN (ACETYLSALICYLIC ACID) (UNKNOWN) (ACETYLSALICYLIC ACID) [Concomitant]
  3. CARVEDILOL (CARVEDILOL) (UNKNOWN) [Concomitant]
  4. DEXAMETHASONE (DEXAMETHASONE) (UNKNOWN) [Concomitant]
  5. HYDROCODONE (HYDROCODONE) (UNKNOWN) [Concomitant]
  6. LORAZEPAM (LORAZEPAM) (UNKNOWN) [Concomitant]
  7. NEXIUM (ESOMEPRAZOLE) (UNKNOWN) [Concomitant]
  8. PAROXETINE (PAROXETINE) (UNKNOWN) (PAROXETINE) [Concomitant]
  9. TEMAZEPAM (TEMAZEPAM) (UNKNOWN) [Concomitant]
  10. ROBITUSSIN (GUAIFENESIN) (UNKNOWN) [Concomitant]
  11. VITAMIN B12 (CYANOCOBALAMIN) (UNKNOWN) [Concomitant]

REACTIONS (1)
  - Fatigue [None]
